FAERS Safety Report 7791391-2 (Version None)
Quarter: 2011Q4

REPORT INFORMATION
  Report Type: 
  Country: None (occurrence: None)
  Receive Date: 20111003
  Receipt Date: 20110922
  Transmission Date: 20120403
  Serious: Yes (Other)
  Sender: FDA-Public Use
  Company Number: US-ELI_LILLY_AND_COMPANY-US201109007119

PATIENT
  Age: 47 Year
  Sex: Male

DRUGS (2)
  1. CYMBALTA [Suspect]
     Indication: PAIN
     Dosage: 30 MG, QD
     Dates: start: 20110908, end: 20110908
  2. ZOLOFT [Concomitant]
     Dosage: 50 MG, UNK

REACTIONS (1)
  - ANAPHYLACTIC REACTION [None]
